FAERS Safety Report 20124732 (Version 1)
Quarter: 2021Q4

REPORT INFORMATION
  Report Type: Spontaneous
  Country: US (occurrence: None)
  Receive Date: 20211126
  Receipt Date: 20211126
  Transmission Date: 20220303
  Serious: Yes (Hospitalization)
  Sender: FDA-Public Use
  Company Number: None

PATIENT
  Age: 63 Year
  Sex: Male
  Weight: 81 kg

DRUGS (1)
  1. PFIZER-BIONTECH COVID-19 VACCINE [Suspect]
     Active Substance: TOZINAMERAN
     Dosage: FREQUENCY : ONCE;?
     Route: 041
     Dates: start: 20211020, end: 20211020

REACTIONS (3)
  - Transient ischaemic attack [None]
  - Cerebrovascular accident [None]
  - Hypertension [None]

NARRATIVE: CASE EVENT DATE: 20211021
